FAERS Safety Report 23092063 (Version 1)
Quarter: 2023Q4

REPORT INFORMATION
  Report Type: Spontaneous
  Country: NL (occurrence: NL)
  Receive Date: 20231021
  Receipt Date: 20231021
  Transmission Date: 20240109
  Serious: Yes (Hospitalization)
  Sender: FDA-Public Use
  Company Number: NL-LRB-00914312

PATIENT
  Age: 78 Year
  Sex: Female
  Weight: 84 kg

DRUGS (2)
  1. HYDROCHLOROTHIAZIDE [Suspect]
     Active Substance: HYDROCHLOROTHIAZIDE
     Indication: Hypertension
     Dosage: 25 MILLIGRAM, ONCE A DAY(1 X PER DAG 1 STUK)
     Route: 065
     Dates: start: 20230501, end: 20231009
  2. LOSARTAN [Concomitant]
     Active Substance: LOSARTAN
     Indication: Product used for unknown indication
     Dosage: FILM COATED TABLET, 25 MG (MILLIGRAM)
     Route: 065

REACTIONS (1)
  - Hyponatraemia [Recovering/Resolving]
